FAERS Safety Report 19270230 (Version 1)
Quarter: 2021Q2

REPORT INFORMATION
  Report Type: Spontaneous
  Country: FR (occurrence: FR)
  Receive Date: 20210518
  Receipt Date: 20210518
  Transmission Date: 20210717
  Serious: Yes (Hospitalization)
  Sender: FDA-Public Use
  Company Number: FR-PFIZER INC-2021505979

PATIENT

DRUGS (1)
  1. ALPROSTADIL. [Suspect]
     Active Substance: ALPROSTADIL
     Indication: ERECTILE DYSFUNCTION
     Dosage: 10 UG EDEX INJECTION
     Route: 017

REACTIONS (1)
  - Priapism [Recovered/Resolved]
